FAERS Safety Report 4407892-0 (Version None)
Quarter: 2004Q3

REPORT INFORMATION
  Report Type: 
  Country: None (occurrence: None)
  Receive Date: 20040721
  Receipt Date: 20040712
  Transmission Date: 20050211
  Serious: Yes (Death)
  Sender: FDA-Public Use
  Company Number: US-2004-028647

PATIENT

DRUGS (6)
  1. FLUDARA FOR INJECTION (FLUDARA PHOSPHATE) AMPULE [Suspect]
     Indication: BONE MARROW TRANSPLANT
     Dosage: 25 OR 30  MG/M2, 1X/DAY D-6 TO D-2, INTRAVENOUS
     Route: 042
  2. MELPHAN (MELPHALAN) [Suspect]
     Indication: BONE MARROW TRANSPLANT
     Dosage: 70 MG/M2, 1X/DAY D-3 + D-2,INTRAVENOUS
     Route: 042
  3. NEUPOGEN [Concomitant]
  4. TACROLIMUS (TACROLIMUS) [Concomitant]
  5. METHOTREXATE [Concomitant]
  6. ANTITHYMOCYTE IMMUNOGLOBULIN (ANTITHYMOCYTE IMMUNOGLOBULIN) [Concomitant]

REACTIONS (1)
  - CARDIOTOXICITY [None]
